FAERS Safety Report 4900045-9 (Version None)
Quarter: 2006Q1

REPORT INFORMATION
  Report Type: 
  Country: None (occurrence: None)
  Receive Date: 20060131
  Receipt Date: 20060119
  Transmission Date: 20060701
  Serious: Yes (Other)
  Sender: FDA-Public Use
  Company Number: USA-2005-0022006

PATIENT
  Age: 52 Year
  Sex: Female

DRUGS (23)
  1. MS CONTIN [Suspect]
     Dates: end: 20051001
  2. PEG-INTRON [Suspect]
     Indication: HEPATITIS C
     Dates: start: 20050925
  3. RIBASPHERE [Suspect]
     Indication: HEPATITIS C
     Dosage: ORAL
     Route: 048
     Dates: start: 20050925
  4. ASPIRIN [Concomitant]
  5. BUSPAR [Concomitant]
  6. CALCIUM GLUCONATE [Concomitant]
  7. GLUCOSAMINE W/CHONDROITIN SULFATES (MANGANESE, GLUCOSAMINE SULFATE, CH [Concomitant]
  8. HYDROMORPHONE HCL [Concomitant]
  9. INDERAL [Concomitant]
  10. LECITHIN (LECITHIN) [Concomitant]
  11. LEVOTHYROXINE SODIUM [Concomitant]
  12. MORPHINE SULFATE [Concomitant]
  13. MULTIVITAMINS (THIAMINE HYDROCHLORIDE, RIBOFLAVIN, RETINOL, PANTHENOL, [Concomitant]
  14. OMEGA-3 (MOEGA-3 TRIGLYCERIDES) [Concomitant]
  15. PROMETHAZINE [Concomitant]
  16. VITAMIN A AND  D (ERGOCALCIFEROL, RETINOL) [Concomitant]
  17. VITAMIN B COMPLEX CAP [Concomitant]
  18. VITAMIN C (ASCORBIC ACID) [Concomitant]
  19. VITAMIN E [Concomitant]
  20. WELLBUTRIN [Concomitant]
  21. MORPHINE SULFATE [Concomitant]
  22. FLASEED OIL CAPSULE [Concomitant]
  23. CALCIUM CAPSULE [Concomitant]

REACTIONS (20)
  - ASTHENIA [None]
  - ASTHMA [None]
  - BLOOD POTASSIUM DECREASED [None]
  - BRONCHITIS [None]
  - BURNING SENSATION [None]
  - DEHYDRATION [None]
  - DISTURBANCE IN ATTENTION [None]
  - DIZZINESS [None]
  - DRUG WITHDRAWAL SYNDROME [None]
  - INJECTION SITE ERYTHEMA [None]
  - INJECTION SITE HAEMORRHAGE [None]
  - INJECTION SITE REACTION [None]
  - INJECTION SITE SWELLING [None]
  - MEMORY IMPAIRMENT [None]
  - MUSCLE DISORDER [None]
  - PNEUMONIA [None]
  - RED BLOOD CELL COUNT DECREASED [None]
  - RESPIRATORY TRACT CONGESTION [None]
  - VOMITING [None]
  - WEIGHT DECREASED [None]
